FAERS Safety Report 17944886 (Version 1)
Quarter: 2020Q2

REPORT INFORMATION
  Report Type: Spontaneous
  Country: US (occurrence: US)
  Receive Date: 20200625
  Receipt Date: 20200625
  Transmission Date: 20200714
  Serious: Yes (Other)
  Sender: FDA-Public Use
  Company Number: US-SA-2020SA162727

PATIENT

DRUGS (1)
  1. DUPIXENT [Suspect]
     Active Substance: DUPILUMAB
     Indication: ASTHMA

REACTIONS (6)
  - Pneumonia [Unknown]
  - Injection site rash [Unknown]
  - Erythema [Unknown]
  - Injection site bruising [Unknown]
  - Pyrexia [Unknown]
  - Asthma [Unknown]
